FAERS Safety Report 7003622-7 (Version None)
Quarter: 2010Q3

REPORT INFORMATION
  Report Type: 
  Country: None (occurrence: None)
  Receive Date: 20100920
  Receipt Date: 20090213
  Transmission Date: 20110219
  Serious: No
  Sender: FDA-Public Use
  Company Number: US-WYE-H08193109

PATIENT
  Sex: Male
  Weight: 69.92 kg

DRUGS (4)
  1. PROTONIX [Suspect]
     Indication: GASTRITIS
     Route: 048
     Dates: start: 20090210
  2. HYDROCODONE BITARTRATE + ACETAMINOPHEN [Concomitant]
  3. ZESTRIL [Concomitant]
  4. ASTELIN [Concomitant]

REACTIONS (4)
  - DECREASED APPETITE [None]
  - DRUG INEFFECTIVE [None]
  - ERUCTATION [None]
  - INCREASED UPPER AIRWAY SECRETION [None]
